FAERS Safety Report 20188718 (Version 1)
Quarter: 2021Q4

REPORT INFORMATION
  Report Type: Spontaneous
  Country: CN (occurrence: CN)
  Receive Date: 20211215
  Receipt Date: 20211215
  Transmission Date: 20220303
  Serious: Yes (Other)
  Sender: FDA-Public Use
  Company Number: CN-MLMSERVICE-20211125-3242796-1

PATIENT
  Age: 52 Year
  Sex: Female

DRUGS (4)
  1. EPIRUBICIN HYDROCHLORIDE [Suspect]
     Active Substance: EPIRUBICIN HYDROCHLORIDE
     Indication: Breast cancer metastatic
     Dosage: 60 MG D1
     Dates: start: 201706, end: 2017
  2. EPIRUBICIN HYDROCHLORIDE [Suspect]
     Active Substance: EPIRUBICIN HYDROCHLORIDE
     Dosage: 50 MG D2
  3. PACLITAXEL [Suspect]
     Active Substance: PACLITAXEL
     Indication: Breast cancer metastatic
     Dosage: 270 MG  D3, Q21D
     Dates: start: 201706, end: 2017
  4. PACLITAXEL [Suspect]
     Active Substance: PACLITAXEL
     Dosage: 240 MG D3

REACTIONS (3)
  - Agranulocytosis [Unknown]
  - Rhabdomyosarcoma [Recovering/Resolving]
  - Pyrexia [Unknown]

NARRATIVE: CASE EVENT DATE: 20170101
